FAERS Safety Report 11751787 (Version 1)
Quarter: 2015Q4

REPORT INFORMATION
  Report Type: Report from Study
  Country: JP (occurrence: JP)
  Receive Date: 20151118
  Receipt Date: 20151118
  Transmission Date: 20160304
  Serious: Yes (Other)
  Sender: FDA-Public Use
  Company Number: JP-SA-2015SA184636

PATIENT

DRUGS (3)
  1. FLUOROURACIL. [Suspect]
     Active Substance: FLUOROURACIL
     Indication: OROPHARYNGEAL CANCER
     Dosage: DAY 1-5
     Route: 042
  2. TAXOTERE [Suspect]
     Active Substance: DOCETAXEL
     Indication: OROPHARYNGEAL CANCER
     Dosage: DAY 1
     Route: 065
  3. CISPLATIN. [Suspect]
     Active Substance: CISPLATIN
     Indication: OROPHARYNGEAL CANCER
     Dosage: DAY 1
     Route: 065

REACTIONS (3)
  - Electrolyte imbalance [Unknown]
  - Inappropriate antidiuretic hormone secretion [Unknown]
  - Neutropenia [Unknown]
